FAERS Safety Report 7606754-5 (Version None)
Quarter: 2011Q3

REPORT INFORMATION
  Report Type: 
  Country: None (occurrence: None)
  Receive Date: 20110713
  Receipt Date: 20110708
  Transmission Date: 20111222
  Serious: Yes (Hospitalization)
  Sender: FDA-Public Use
  Company Number: FR-ROCHE-788666

PATIENT
  Age: 45 Year
  Sex: Female

DRUGS (9)
  1. PRAZEPAM [Suspect]
     Route: 048
  2. VENTOLIN [Suspect]
     Route: 065
  3. CLONAZEPAM [Suspect]
     Route: 048
     Dates: start: 20100827, end: 20100830
  4. ATARAX [Suspect]
     Route: 048
     Dates: start: 20100808, end: 20100830
  5. ATHYMIL [Suspect]
     Route: 048
     Dates: end: 20100902
  6. SINGULAIR [Suspect]
     Route: 065
  7. TEGRETOL [Suspect]
     Dosage: REDUCED DOSE
     Route: 048
  8. XYZAL [Suspect]
     Route: 065
  9. ANAFRANIL [Suspect]
     Route: 048
     Dates: end: 20100827

REACTIONS (1)
  - CYTOLYTIC HEPATITIS [None]
